FAERS Safety Report 7404481-0 (Version None)
Quarter: 2011Q2

REPORT INFORMATION
  Report Type: 
  Country: None (occurrence: None)
  Receive Date: 20110408
  Receipt Date: 20110401
  Transmission Date: 20111010
  Serious: Yes (Other)
  Sender: FDA-Public Use
  Company Number: FR-PFIZER INC-2011060892

PATIENT
  Age: 62 Year
  Sex: Female

DRUGS (5)
  1. STILNOX [Suspect]
     Dosage: UNK
  2. SOLU-MEDROL [Suspect]
     Dosage: 1 G, 1X/DAY
     Route: 040
     Dates: start: 20110307, end: 20110309
  3. CYMBALTA [Suspect]
     Dosage: UNK
     Dates: start: 20110101, end: 20110315
  4. MYOLASTAN [Suspect]
     Dosage: UNK
  5. DAFALGAN [Suspect]
     Indication: PAIN

REACTIONS (7)
  - MULTIPLE SCLEROSIS RELAPSE [None]
  - BURNING SENSATION [None]
  - MUSCULOSKELETAL STIFFNESS [None]
  - ABASIA [None]
  - FEELING ABNORMAL [None]
  - FATIGUE [None]
  - CONSTIPATION [None]
